FAERS Safety Report 18267529 (Version 1)
Quarter: 2020Q3

REPORT INFORMATION
  Report Type: Spontaneous
  Country: DE (occurrence: DE)
  Receive Date: 20200915
  Receipt Date: 20200915
  Transmission Date: 20201103
  Serious: Yes (Death, Life-Threatening, Hospitalization)
  Sender: FDA-Public Use
  Company Number: DE-JNJFOC-20200906972

PATIENT
  Age: 86 Year
  Sex: Female

DRUGS (1)
  1. RIVAROXABAN [Suspect]
     Active Substance: RIVAROXABAN
     Indication: PRODUCT USED FOR UNKNOWN INDICATION
     Dosage: NK
     Route: 048

REACTIONS (4)
  - Hypertension [Unknown]
  - Pupils unequal [Unknown]
  - Dyspnoea [Unknown]
  - Circulatory collapse [Unknown]
